FAERS Safety Report 15629262 (Version 3)
Quarter: 2020Q4

REPORT INFORMATION
  Report Type: Spontaneous
  Country: RS (occurrence: RS)
  Receive Date: 20181116
  Receipt Date: 20201203
  Transmission Date: 20210113
  Serious: Yes (Other)
  Sender: FDA-Public Use
  Company Number: RS-ROCHE-2213666

PATIENT
  Age: 67 Year
  Sex: Female

DRUGS (4)
  1. ACTEMRA [Suspect]
     Active Substance: TOCILIZUMAB
     Indication: RHEUMATOID ARTHRITIS
     Route: 065
     Dates: start: 201503
  2. ISONIAZID. [Suspect]
     Active Substance: ISONIAZID
     Indication: TUBERCULIN TEST POSITIVE
     Route: 065
     Dates: start: 201603, end: 201608
  3. INFLIXIMAB [Suspect]
     Active Substance: INFLIXIMAB
     Indication: PRODUCT USED FOR UNKNOWN INDICATION
     Route: 065
     Dates: start: 2014, end: 2015
  4. ACTEMRA [Suspect]
     Active Substance: TOCILIZUMAB
     Route: 065
     Dates: start: 201603, end: 2020

REACTIONS (8)
  - Neutropenia [Unknown]
  - Transaminases increased [Unknown]
  - Leukopenia [Unknown]
  - Systemic lupus erythematosus [Unknown]
  - Lupus-like syndrome [Unknown]
  - Thrombocytopenia [Unknown]
  - Lymphopenia [Unknown]
  - Arthritis [Unknown]

NARRATIVE: CASE EVENT DATE: 2016
